FAERS Safety Report 15699724 (Version 1)
Quarter: 2018Q4

REPORT INFORMATION
  Report Type: Spontaneous
  Country: US (occurrence: US)
  Receive Date: 20181207
  Receipt Date: 20181207
  Transmission Date: 20190205
  Serious: Yes (Life-Threatening, Hospitalization)
  Sender: FDA-Public Use
  Company Number: None

PATIENT
  Age: 32 Year
  Sex: Female
  Weight: 46.8 kg

DRUGS (1)
  1. RHOGAM [Suspect]
     Active Substance: HUMAN RHO(D) IMMUNE GLOBULIN
     Indication: RHESUS ANTIGEN NEGATIVE
     Dosage: ?          QUANTITY:1 INJECTION(S);OTHER FREQUENCY:ONCE;?
     Route: 030
     Dates: start: 20180921, end: 20180921

REACTIONS (15)
  - Back pain [None]
  - Pneumothorax [None]
  - Pyrexia [None]
  - Chills [None]
  - Heart rate increased [None]
  - Dyspnoea [None]
  - Musculoskeletal stiffness [None]
  - Asthenia [None]
  - Myalgia [None]
  - Haemorrhage [None]
  - Headache [None]
  - Tremor [None]
  - Gait disturbance [None]
  - Dizziness [None]
  - Haemoglobin decreased [None]

NARRATIVE: CASE EVENT DATE: 20180921
